FAERS Safety Report 5316643-7 (Version None)
Quarter: 2007Q2

REPORT INFORMATION
  Report Type: 
  Country: None (occurrence: None)
  Receive Date: 20070430
  Receipt Date: 20070430
  Transmission Date: 20071010
  Serious: Yes (Hospitalization)
  Sender: FDA-Public Use
  Company Number: None

PATIENT
  Sex: Female
  Weight: 104.7 kg

DRUGS (2)
  1. L-ASPARAGINASE [Suspect]
     Dosage: 1340 UNIT
     Dates: start: 20070410, end: 20070424
  2. COTRIMOXAZOLE DS [Concomitant]

REACTIONS (6)
  - DRUG HYPERSENSITIVITY [None]
  - ERYTHEMA [None]
  - PARAESTHESIA ORAL [None]
  - PRURITUS [None]
  - SWOLLEN TONGUE [None]
  - URTICARIA [None]
